FAERS Safety Report 4786285-0 (Version None)
Quarter: 2005Q3

REPORT INFORMATION
  Report Type: 
  Country: None (occurrence: None)
  Receive Date: 20050929
  Receipt Date: 20050802
  Transmission Date: 20060218
  Serious: Yes (Other)
  Sender: FDA-Public Use
  Company Number: 412623

PATIENT
  Age: 57 Year
  Sex: Male
  Weight: 68 kg

DRUGS (5)
  1. COPEGUS [Suspect]
     Indication: HEPATITIS C
     Dosage: ORAL
     Route: 048
     Dates: start: 20050116
  2. PEG-INTRON [Suspect]
     Indication: HEPATITIS C
     Dosage: SUBCUTANEOUS
     Route: 058
     Dates: start: 20050116
  3. CELEXA [Concomitant]
  4. CLARITIN [Concomitant]
  5. REGLAN [Concomitant]

REACTIONS (1)
  - WEIGHT DECREASED [None]
